FAERS Safety Report 7460959-5 (Version None)
Quarter: 2011Q2

REPORT INFORMATION
  Report Type: 
  Country: None (occurrence: None)
  Receive Date: 20110505
  Receipt Date: 20110425
  Transmission Date: 20111010
  Serious: Yes (Other)
  Sender: FDA-Public Use
  Company Number: PHHY2011US35706

PATIENT
  Age: 2 Week
  Sex: Female
  Weight: 2 kg

DRUGS (2)
  1. PAMIDRONATE DISODIUM [Suspect]
     Indication: HYPERCALCAEMIA
     Route: 042
  2. PAMIDRONATE DISODIUM [Suspect]
     Indication: HYPERPARATHYROIDISM

REACTIONS (7)
  - FAILURE TO THRIVE [None]
  - CONCOMITANT DISEASE AGGRAVATED [None]
  - HYPERPARATHYROIDISM [None]
  - HYPOCALCAEMIA [None]
  - HYPERCALCAEMIA [None]
  - SMALL FOR DATES BABY [None]
  - BLOOD ALBUMIN DECREASED [None]
